FAERS Safety Report 7570381-9 (Version None)
Quarter: 2011Q2

REPORT INFORMATION
  Report Type: 
  Country: None (occurrence: None)
  Receive Date: 20110624
  Receipt Date: 20110621
  Transmission Date: 20111010
  Serious: Yes (Hospitalization)
  Sender: FDA-Public Use
  Company Number: US-PFIZER INC-2011076064

PATIENT
  Sex: Female
  Weight: 58.7 kg

DRUGS (15)
  1. ATORVASTATIN CALCIUM [Suspect]
     Indication: HYPERLIPIDAEMIA
     Dosage: 40 MG, 1X/DAY
     Route: 048
     Dates: start: 20090401, end: 20110405
  2. DIPHENHYDRAMINE [Concomitant]
     Indication: PROPHYLAXIS
     Dosage: 50 MG, PRIOR TO CHEMO
     Route: 042
     Dates: start: 20110322
  3. NERATINIB [Suspect]
     Indication: BREAST CANCER
     Dosage: 240 MG, 1X/DAY
     Route: 048
     Dates: start: 20110322
  4. FLUOXETINE [Concomitant]
     Indication: DEPRESSION
     Dosage: 10 MG, 1X/DAY
     Route: 048
     Dates: start: 20090415
  5. DEXAMETHASONE [Concomitant]
     Indication: PROPHYLAXIS
     Dosage: 20 MG, PRIOR TO CHEMO
     Route: 048
     Dates: start: 20110321
  6. ONDANSETRON [Concomitant]
     Indication: PROPHYLAXIS
     Dosage: 8 MG, PRIOR TO CHEMO
     Route: 048
     Dates: start: 20110322
  7. VITAMIN D [Concomitant]
     Indication: SUPPLEMENTATION THERAPY
     Dosage: UNK UNITS, EVERY 7 DAYS
     Route: 048
     Dates: start: 20100201
  8. IMODIUM [Concomitant]
     Indication: DIARRHOEA
     Dosage: 2 MG TAB EVERY 2 HOURS
     Route: 048
     Dates: start: 20110322
  9. LORAZEPAM [Concomitant]
     Indication: NAUSEA
     Dosage: 1 MG, AS NEEDED
     Route: 048
     Dates: start: 20110322
  10. LOMOTIL [Concomitant]
     Indication: DIARRHOEA
     Dosage: 2.5-0.25 MG, 2 TABS 4 TIMES DAILY
     Route: 048
     Dates: start: 20110326
  11. ACETAMINOPHEN AND HYDROCODONE BITARTRATE [Concomitant]
     Indication: CATHETER PLACEMENT
  12. IBUPROFEN [Concomitant]
     Indication: PAIN
     Dosage: 800 MG, AS NEEDED
     Route: 048
     Dates: start: 20110322
  13. ACETAMINOPHEN AND HYDROCODONE BITARTRATE [Concomitant]
     Indication: PAIN
     Dosage: 5-500 MG, 1 TAB EVERY 4 HOURS
     Route: 048
     Dates: start: 20110314
  14. RANITIDINE [Concomitant]
     Indication: PROPHYLAXIS
     Dosage: 50 MG, BEFORE CHEMO TX.
     Route: 042
     Dates: start: 20110322
  15. PACLITAXEL [Suspect]
     Indication: BREAST CANCER
     Dosage: 80 MG/M2, WEEKLY
     Route: 042
     Dates: start: 20110322, end: 20110328

REACTIONS (2)
  - DIARRHOEA [None]
  - DEHYDRATION [None]
